FAERS Safety Report 8219534-7 (Version None)
Quarter: 2012Q1

REPORT INFORMATION
  Report Type: 
  Country: None (occurrence: None)
  Receive Date: 20120319
  Receipt Date: 20120312
  Transmission Date: 20120608
  Serious: Yes (Hospitalization, Other)
  Sender: FDA-Public Use
  Company Number: PHHY2012PL021206

PATIENT
  Sex: Male
  Weight: 42 kg

DRUGS (1)
  1. OMNITROPE [Suspect]
     Indication: GROWTH HORMONE DEFICIENCY
     Dosage: 1.2 MG TO 1.1 MG
     Route: 042
     Dates: start: 20111221, end: 20120305

REACTIONS (1)
  - VIITH NERVE PARALYSIS [None]
